FAERS Safety Report 20891714 (Version 1)
Quarter: 2022Q2

REPORT INFORMATION
  Report Type: Spontaneous
  Country: US (occurrence: US)
  Receive Date: 20220530
  Receipt Date: 20220530
  Transmission Date: 20220721
  Serious: No
  Sender: FDA-Public Use
  Company Number: US-BRISTOL-MYERS SQUIBB COMPANY-2022-035374

PATIENT
  Age: 70 Year
  Sex: Female

DRUGS (1)
  1. POMALYST [Suspect]
     Active Substance: POMALIDOMIDE
     Indication: Plasma cell myeloma
     Dosage: DOSE: 3 MILLIGRAM, FREQ: TAKE 1 CAPSULE BY MOUTH EVERYDAY ON DAYS 1-21 OF A 28 DAY CYCLE
     Route: 048
     Dates: start: 20220422

REACTIONS (2)
  - Seasonal allergy [Unknown]
  - Product dose omission issue [Unknown]
